FAERS Safety Report 4979687-0 (Version None)
Quarter: 2006Q1

REPORT INFORMATION
  Report Type: 
  Country: None (occurrence: None)
  Receive Date: 20060227
  Receipt Date: 20050107
  Transmission Date: 20060701
  Serious: Yes (Hospitalization, Other)
  Sender: FDA-Public Use
  Company Number: WAES  0501USA00757

PATIENT
  Sex: 0

DRUGS (1)
  1. ZOCOR [Suspect]
     Dosage: 80 MG DAILY PO
     Route: 048
     Dates: start: 20040501

REACTIONS (2)
  - FATIGUE [None]
  - MYOPATHY [None]
